FAERS Safety Report 16831568 (Version 1)
Quarter: 2019Q3

REPORT INFORMATION
  Report Type: Spontaneous
  Country: DK (occurrence: DK)
  Receive Date: 20190920
  Receipt Date: 20190920
  Transmission Date: 20191005
  Serious: Yes (Congenital Anomaly)
  Sender: FDA-Public Use
  Company Number: DK-ACCORD-155157

PATIENT
  Age: 0 Day
  Sex: Male

DRUGS (1)
  1. LETROZOL ACCORD [Suspect]
     Active Substance: LETROZOLE
     Indication: INFERTILITY
     Dosage: DOSAGE: 1 TABLET (2 1/2 MG) DAILY FOR 5 DAYS, STRENGTH: 2.5 MG
     Route: 064
     Dates: start: 20180901, end: 20180905

REACTIONS (2)
  - Duodenal atresia [Recovered/Resolved]
  - Foetal exposure during pregnancy [Unknown]

NARRATIVE: CASE EVENT DATE: 20190316
